FAERS Safety Report 20855107 (Version 2)
Quarter: 2022Q2

REPORT INFORMATION
  Report Type: Report from Study
  Country: PA (occurrence: PA)
  Receive Date: 20220520
  Receipt Date: 20220526
  Transmission Date: 20220721
  Serious: Yes (Other)
  Sender: FDA-Public Use
  Company Number: PA-NOVARTISPH-NVSC2021PA216995

PATIENT
  Sex: Female
  Weight: 78.912 kg

DRUGS (8)
  1. KISQALI [Suspect]
     Active Substance: RIBOCICLIB
     Indication: Breast cancer metastatic
     Dosage: 600 MG (3 TABLETS A DAY IN ONE TAKE), QD (AT NIGHT)
     Route: 065
     Dates: start: 202105
  2. KISQALI [Suspect]
     Active Substance: RIBOCICLIB
     Indication: Metastases to neck
     Dosage: 600 MG, QMO
     Route: 048
     Dates: start: 202106
  3. KISQALI [Suspect]
     Active Substance: RIBOCICLIB
     Indication: Metastases to central nervous system
  4. FULVESTRANT [Suspect]
     Active Substance: FULVESTRANT
     Indication: Breast cancer metastatic
     Dosage: UNK
     Route: 065
  5. FULVESTRANT [Suspect]
     Active Substance: FULVESTRANT
     Dosage: UNK, QMO (APPROXIMATELY 7 MONTHS AGO)
     Route: 030
  6. FULVESTRANT [Suspect]
     Active Substance: FULVESTRANT
     Dosage: UNK, EVERY 21 DAYS
     Route: 065
     Dates: start: 20220427
  7. NEUROBION [Concomitant]
     Active Substance: CYANOCOBALAMIN\PYRIDOXINE\THIAMINE
     Indication: Arthralgia
     Dosage: 1 DOSAGE FORM (FROM YEARS AGO)
     Route: 065
  8. ESOMEPRAZOLE [Concomitant]
     Active Substance: ESOMEPRAZOLE
     Indication: Product used for unknown indication
     Dosage: 40 MG, QD
     Route: 048

REACTIONS (19)
  - Metastases to lymph nodes [Not Recovered/Not Resolved]
  - Metastases to central nervous system [Unknown]
  - Metastases to neck [Unknown]
  - Product availability issue [Unknown]
  - Groin pain [Unknown]
  - Arthralgia [Unknown]
  - Swelling [Unknown]
  - Gastrooesophageal reflux disease [Not Recovered/Not Resolved]
  - Injection site pain [Unknown]
  - Pruritus [Recovered/Resolved]
  - Hypersensitivity [Recovered/Resolved]
  - Skin discolouration [Recovering/Resolving]
  - Musculoskeletal discomfort [Unknown]
  - Vulvovaginal pain [Unknown]
  - Electric shock sensation [Unknown]
  - Alopecia [Unknown]
  - Dry skin [Unknown]
  - Injection site mass [Unknown]
  - Inappropriate schedule of product administration [Unknown]

NARRATIVE: CASE EVENT DATE: 20210101
